FAERS Safety Report 7078575-6 (Version None)
Quarter: 2010Q4

REPORT INFORMATION
  Report Type: 
  Country: None (occurrence: None)
  Receive Date: 20101102
  Receipt Date: 20101022
  Transmission Date: 20110411
  Serious: Yes (Other)
  Sender: FDA-Public Use
  Company Number: JP-BRISTOL-MYERS SQUIBB COMPANY-15359946

PATIENT
  Age: 50 Year
  Sex: Female

DRUGS (5)
  1. TAXOL [Suspect]
     Indication: BREAST CANCER
     Dosage: TOTAL:7 CYCLES
     Route: 041
  2. CYCLOPHOSPHAMIDE [Suspect]
     Indication: BREAST CANCER
     Dosage: RECEIVED 6 CYCLES
  3. FLUOROURACIL [Suspect]
     Indication: BREAST CANCER
     Dosage: RECEIVED 6 CYCLES
  4. EPIRUBICIN HYDROCHLORIDE [Suspect]
     Indication: BREAST CANCER
     Dosage: INJECTION.RECEIVED 6 CYCLES
  5. DOCETAXEL [Concomitant]
     Indication: BREAST CANCER
     Dosage: 1DF=60-75MG INJECTION(5 CYCLES)
     Route: 041

REACTIONS (3)
  - HYPERVENTILATION [None]
  - NEUROPATHY PERIPHERAL [None]
  - NEUTROPHIL COUNT DECREASED [None]
